FAERS Safety Report 24883145 (Version 2)
Quarter: 2025Q1

REPORT INFORMATION
  Report Type: Spontaneous
  Country: US (occurrence: US)
  Receive Date: 20250124
  Receipt Date: 20250217
  Transmission Date: 20250408
  Serious: Yes (Hospitalization)
  Sender: RECORDATI
  Company Number: US-RECORDATI RARE DISEASE INC.-2025000326

PATIENT
  Age: 4 Year
  Sex: Female
  Weight: 10.204 kg

DRUGS (7)
  1. CARBAGLU [Suspect]
     Active Substance: CARGLUMIC ACID
     Indication: Methylmalonic acidaemia
     Dosage: DISSOLVE ONE 200 MG TABLET IN 2.5 ML OF WATER AND TAKE ONCE DAILY BY MOUTH IN THE MORNING. DISSOLVE
     Route: 048
     Dates: start: 20201223
  2. CARBAGLU [Suspect]
     Active Substance: CARGLUMIC ACID
     Dosage: DISSOLVE ONE 200 MG TABLET IN 2.5 ML OF WATER AND TAKE ONCE DAILY BY MOUTH IN THE MORNING. DISSOLVE
     Route: 048
  3. CARBAGLU [Suspect]
     Active Substance: CARGLUMIC ACID
     Dosage: DISSOLVE ONE 200 MG TABLET IN 2.5 ML OF WATER AND TAKE ONCE DAILY BY MOUTH IN THE MORNING. DISSOLVE
     Route: 048
  4. CARBAGLU [Suspect]
     Active Substance: CARGLUMIC ACID
     Route: 048
  5. LEVOCARNITINE [Concomitant]
     Active Substance: LEVOCARNITINE
     Indication: Product used for unknown indication
  6. UROCIT-K [Concomitant]
     Active Substance: POTASSIUM CITRATE
     Indication: Product used for unknown indication
  7. CYANOCOBALAMIN [Concomitant]
     Active Substance: CYANOCOBALAMIN
     Indication: Product used for unknown indication

REACTIONS (1)
  - Influenza [Unknown]

NARRATIVE: CASE EVENT DATE: 20250101
